FAERS Safety Report 8935615 (Version 1)
Quarter: 2012Q4

REPORT INFORMATION
  Report Type: Spontaneous
  Country: US (occurrence: None)
  Receive Date: 20121128
  Receipt Date: 20121128
  Transmission Date: 20130627
  Serious: Yes (Hospitalization)
  Sender: FDA-Public Use
  Company Number: None

PATIENT
  Age: 69 Year
  Sex: Male
  Weight: 69.8 kg

DRUGS (3)
  1. FLUOXETINE [Suspect]
     Indication: DEPRESSION
     Route: 048
     Dates: start: 20111206, end: 20120914
  2. TRAZODONE [Suspect]
     Indication: INSOMNIA
     Route: 048
     Dates: start: 20011206, end: 20120914
  3. TRAZODONE [Suspect]
     Indication: DEPRESSION
     Route: 048
     Dates: start: 20011206, end: 20120914

REACTIONS (11)
  - Vision blurred [None]
  - Dizziness [None]
  - Headache [None]
  - Sedation [None]
  - Fall [None]
  - Asthenia [None]
  - Dysarthria [None]
  - Lethargy [None]
  - Abdominal pain [None]
  - Nausea [None]
  - Loss of consciousness [None]
